FAERS Safety Report 8999090 (Version 2)
Quarter: 2013Q1

REPORT INFORMATION
  Report Type: Report from Study
  Country: US (occurrence: US)
  Receive Date: 20130103
  Receipt Date: 20130213
  Transmission Date: 20140127
  Serious: No
  Sender: FDA-Public Use
  Company Number: US-VERTEX PHARMACEUTICALS INC.-AE-2012-005205

PATIENT
  Age: 50 Year
  Sex: Male

DRUGS (3)
  1. VX-950 (TELAPREVIR) [Suspect]
     Indication: HEPATITIS C
     Dosage: 750 MG, TID
     Dates: start: 20120323, end: 20120615
  2. PEGASYS [Suspect]
     Indication: HEPATITIS C
     Dosage: 180 ?G,QW
     Route: 058
     Dates: start: 20120323
  3. RIBAVIRIN [Suspect]
     Indication: HEPATITIS C
     Dosage: 1000 MG, UNK
     Route: 048
     Dates: start: 20120323

REACTIONS (12)
  - Dyspnoea [Not Recovered/Not Resolved]
  - Anxiety [Not Recovered/Not Resolved]
  - Emotional distress [Not Recovered/Not Resolved]
  - Arthralgia [Not Recovered/Not Resolved]
  - Headache [Not Recovered/Not Resolved]
  - Pain in extremity [Unknown]
  - Pain [Not Recovered/Not Resolved]
  - Fatigue [Not Recovered/Not Resolved]
  - Haemorrhoids [Recovered/Resolved]
  - Nausea [Unknown]
  - Pruritus [Recovered/Resolved]
  - Anal pruritus [Recovered/Resolved]
